FAERS Safety Report 4404827-1 (Version None)
Quarter: 2004Q2

REPORT INFORMATION
  Report Type: 
  Country: None (occurrence: None)
  Receive Date: 20040621
  Receipt Date: 20040326
  Transmission Date: 20050107
  Serious: No
  Sender: FDA-Public Use
  Company Number: A-US2004-05555

PATIENT
  Age: 69 Year
  Sex: Female

DRUGS (17)
  1. TRACLEER [Suspect]
     Indication: PULMONARY HYPERTENSION
     Dosage: 62.5 MG, BID, ORAL
     Route: 048
     Dates: start: 20040316
  2. FOSAMAX [Concomitant]
  3. TEQUIN [Concomitant]
  4. METOCLOPRAMIDE [Concomitant]
  5. CELEBREX [Concomitant]
  6. ASPIRIN [Concomitant]
  7. OXYCONTIN [Concomitant]
  8. OXYCODONE (OXYCODONE) [Concomitant]
  9. ZOLOFT [Concomitant]
  10. NORVASC [Concomitant]
  11. LASIX [Concomitant]
  12. ALBUTEROL [Concomitant]
  13. ADVAIR DISKUS 100/50 [Concomitant]
  14. FLONASE [Concomitant]
  15. SINGULAIR [Concomitant]
  16. POTASSIUM (POTASSIUM) [Concomitant]
  17. MULTIVITAMIN [Concomitant]

REACTIONS (2)
  - OEDEMA PERIPHERAL [None]
  - PNEUMONIA [None]
